FAERS Safety Report 12623003 (Version 4)
Quarter: 2016Q4

REPORT INFORMATION
  Report Type: Report from Study
  Country: NL (occurrence: NL)
  Receive Date: 20160804
  Receipt Date: 20161019
  Transmission Date: 20170207
  Serious: Yes (Other)
  Sender: FDA-Public Use
  Company Number: NL-BAYER-2016-142262

PATIENT
  Age: 37 Year
  Sex: Female

DRUGS (2)
  1. BETAFERON [Suspect]
     Active Substance: INTERFERON BETA-1B
     Dosage: 0.25 UNK, UNK
  2. BETAFERON [Suspect]
     Active Substance: INTERFERON BETA-1B
     Dosage: 0.50 UNK, UNK
     Dates: start: 20160729

REACTIONS (18)
  - Diarrhoea [None]
  - Crohn^s disease [None]
  - Injection site bruising [None]
  - Dry skin [None]
  - Adverse drug reaction [None]
  - Tremor [None]
  - Feeling cold [None]
  - Feeling abnormal [None]
  - Pyrexia [None]
  - Alopecia [None]
  - Chills [None]
  - Feeling hot [None]
  - Fatigue [Recovered/Resolved]
  - Nasopharyngitis [None]
  - Poor quality sleep [None]
  - Middle insomnia [None]
  - Malaise [Recovered/Resolved]
  - Headache [None]

NARRATIVE: CASE EVENT DATE: 20160713
